FAERS Safety Report 5399845-3 (Version None)
Quarter: 2007Q3

REPORT INFORMATION
  Report Type: 
  Country: None (occurrence: None)
  Receive Date: 20070730
  Receipt Date: 20070718
  Transmission Date: 20080115
  Serious: Yes (Hospitalization, Other)
  Sender: FDA-Public Use
  Company Number: PHMT2007CA01464

PATIENT
  Age: 77 Year
  Sex: Male
  Weight: 58.9 kg

DRUGS (15)
  1. EXELON [Suspect]
     Indication: DEMENTIA ALZHEIMER'S TYPE
     Dosage: 1.5 MG,QD
     Route: 048
     Dates: start: 20070212, end: 20070219
  2. EXELON [Suspect]
     Dosage: 1.5 MG, BID
     Dates: start: 20070219, end: 20070312
  3. EXELON [Suspect]
     Dosage: 3 MG QAM AND 1.5 MG QPM
     Dates: start: 20070312, end: 20070319
  4. EXELON [Suspect]
     Dosage: 3 MG, BID
     Dates: start: 20070319, end: 20070323
  5. ACETAMINOPHEN [Concomitant]
     Dosage: 500 MG, TID
  6. CALCIUM CHLORIDE [Concomitant]
     Dosage: 500 MG, BID
  7. COLACE [Concomitant]
     Dosage: 1 CAPSULE BID
     Route: 048
  8. LEVOTHYROXINE SODIUM [Concomitant]
     Dosage: 0.05 MG, QD
     Route: 048
  9. MULTIVIT [Concomitant]
     Dosage: 1 TABLET, QD
     Route: 048
  10. VITAMIN D [Concomitant]
     Dosage: 2 TABLETS, QD
     Route: 048
  11. SENOKOT [Concomitant]
     Dosage: 1 TABLET, QHS
     Route: 048
  12. RHINOCORT [Concomitant]
     Dosage: 1 SPRAY IN EACH NOSTRIL, BID
     Route: 045
  13. VITAMIN E [Concomitant]
     Dosage: UNK, UNK
  14. OLANZAPINE [Concomitant]
     Dosage: UNK, UNK
  15. EYE DROPS [Concomitant]

REACTIONS (13)
  - CONDITION AGGRAVATED [None]
  - CONFUSIONAL STATE [None]
  - DEPRESSED LEVEL OF CONSCIOUSNESS [None]
  - ELECTROCARDIOGRAM ST SEGMENT DEPRESSION [None]
  - FALL [None]
  - HEART SOUNDS ABNORMAL [None]
  - HIP ARTHROPLASTY [None]
  - HIP FRACTURE [None]
  - MUSCLE TWITCHING [None]
  - RALES [None]
  - RESTLESSNESS [None]
  - WALKING DISABILITY [None]
  - WHEELCHAIR USER [None]
